FAERS Safety Report 16388075 (Version 1)
Quarter: 2019Q2

REPORT INFORMATION
  Report Type: Spontaneous
  Country: FR (occurrence: FR)
  Receive Date: 20190604
  Receipt Date: 20190604
  Transmission Date: 20190711
  Serious: Yes (Other)
  Sender: FDA-Public Use
  Company Number: FR-MYLANLABS-2019M1052661

PATIENT
  Age: 55 Year
  Sex: Female

DRUGS (12)
  1. ATORVASTATINE                      /01326101/ [Concomitant]
     Active Substance: ATORVASTATIN
     Dosage: UNK
  2. NORMACOL BOURDAINE [Concomitant]
  3. SERETIDE [Concomitant]
     Active Substance: FLUTICASONE PROPIONATE\SALMETEROL XINAFOATE
     Dosage: UNK
  4. PANTOPRAZOLE [Concomitant]
     Active Substance: PANTOPRAZOLE
     Dosage: UNK
  5. IBUPROFENE [Concomitant]
     Active Substance: IBUPROFEN
     Dosage: UNK
  6. VENTOLINE                          /00139502/ [Concomitant]
     Active Substance: ALBUTEROL SULFATE
     Dosage: UNK
  7. LAMOTRIGINE. [Concomitant]
     Active Substance: LAMOTRIGINE
     Dosage: UNK
  8. LETROZOLE. [Suspect]
     Active Substance: LETROZOLE
     Indication: BREAST CANCER
     Dosage: 2.5 MILLIGRAM, QD
     Route: 048
     Dates: start: 201804
  9. SERTRALINE [Suspect]
     Active Substance: SERTRALINE HYDROCHLORIDE
     Indication: DEPRESSION
     Dosage: 200 MILLIGRAM, QD
     Route: 048
  10. DIAZEPAM. [Concomitant]
     Active Substance: DIAZEPAM
     Dosage: UNK
  11. QUETIAPINE. [Concomitant]
     Active Substance: QUETIAPINE
     Dosage: UNK
  12. ZOPICLONE [Concomitant]
     Active Substance: ZOPICLONE
     Dosage: UNK

REACTIONS (3)
  - Muscular weakness [Not Recovered/Not Resolved]
  - Fall [Recovered/Resolved]
  - Gait deviation [Not Recovered/Not Resolved]

NARRATIVE: CASE EVENT DATE: 2018
